FAERS Safety Report 4513334-7 (Version None)
Quarter: 2004Q4

REPORT INFORMATION
  Report Type: 
  Country: None (occurrence: None)
  Receive Date: 20041130
  Receipt Date: 20040811
  Transmission Date: 20050328
  Serious: No
  Sender: FDA-Public Use
  Company Number: US-BRISTOL-MYERS SQUIBB COMPANY-12667861

PATIENT
  Sex: Female

DRUGS (4)
  1. ERBITUX [Suspect]
     Indication: COLON CANCER METASTATIC
     Dosage: REC'D ONE DOSE - LOADING DOSE
     Route: 042
     Dates: start: 20040701, end: 20040701
  2. IRINOTECAN [Concomitant]
  3. ALOXI [Concomitant]
  4. DECADRON [Concomitant]

REACTIONS (2)
  - GLOSSITIS [None]
  - TONGUE ULCERATION [None]
